FAERS Safety Report 6235185-8 (Version None)
Quarter: 2009Q2

REPORT INFORMATION
  Report Type: 
  Country: None (occurrence: None)
  Receive Date: 20090618
  Receipt Date: 20090610
  Transmission Date: 20091009
  Serious: Yes (Life-Threatening)
  Sender: FDA-Public Use
  Company Number: CN-GENENTECH-274268

PATIENT

DRUGS (1)
  1. ACTIVASE [Suspect]
     Indication: ISCHAEMIC STROKE
     Dosage: UNK
     Route: 042
     Dates: start: 20081218, end: 20081218

REACTIONS (1)
  - ANAPHYLACTIC SHOCK [None]
